FAERS Safety Report 10333997 (Version 2)
Quarter: 2014Q3

REPORT INFORMATION
  Report Type: Spontaneous
  Country: US (occurrence: US)
  Receive Date: 20140723
  Receipt Date: 20140723
  Transmission Date: 20150326
  Serious: No
  Sender: FDA-Public Use
  Company Number: US-UNITED THERAPEUTICS-UTC-047023

PATIENT
  Sex: Male
  Weight: 61.22 kg

DRUGS (2)
  1. REMODULIN [Suspect]
     Active Substance: TREPROSTINIL
     Dosage: 0.0755 UG/KG/MIN, CONTINUING
     Route: 058
     Dates: start: 20101001
  2. TRACLEER [Concomitant]
     Active Substance: BOSENTAN\BOSENTAN MONOHYDRATE

REACTIONS (6)
  - Infusion site erythema [Not Recovered/Not Resolved]
  - Infusion site induration [Unknown]
  - Infusion site swelling [Not Recovered/Not Resolved]
  - Drug dose omission [Unknown]
  - Device dislocation [Unknown]
  - Infusion site irritation [Unknown]
